FAERS Safety Report 7065274-X (Version None)
Quarter: 2010Q4

REPORT INFORMATION
  Report Type: 
  Country: None (occurrence: None)
  Receive Date: 20101022
  Receipt Date: 20101022
  Transmission Date: 20110411
  Serious: Yes (Hospitalization)
  Sender: FDA-Public Use
  Company Number: None

PATIENT
  Age: 64 Year
  Sex: Female
  Weight: 40 kg

DRUGS (14)
  1. VORICONAZOLE [Suspect]
     Indication: BRONCHOPULMONARY ASPERGILLOSIS
     Dosage: 200 MG BID ORAL (047)
     Route: 048
     Dates: start: 20050701, end: 20090701
  2. CYCLOSPORINE [Concomitant]
  3. CARTIA XT [Concomitant]
  4. TOPROL-XL [Concomitant]
  5. BACTRIM [Concomitant]
  6. FENTANYL [Concomitant]
  7. HYDROCODONE BITARTRATE [Concomitant]
  8. LASIX [Concomitant]
  9. MIRALAX [Concomitant]
  10. GABAPENTIN [Concomitant]
  11. ONDANSETRON [Concomitant]
  12. PROTONIX [Concomitant]
  13. VALTREX [Concomitant]
  14. ERGOCALCIFEROL [Concomitant]

REACTIONS (4)
  - FLUORIDE INCREASED [None]
  - FLUOROSIS [None]
  - HIGH TURNOVER OSTEOPATHY [None]
  - OSTEOMALACIA [None]
